FAERS Safety Report 18240659 (Version 1)
Quarter: 2020Q3

REPORT INFORMATION
  Report Type: Spontaneous
  Country: US (occurrence: US)
  Receive Date: 20200905
  Receipt Date: 20200905
  Transmission Date: 20201103
  Serious: Yes (Other)
  Sender: FDA-Public Use
  Company Number: None

PATIENT
  Age: 74 Year
  Sex: Male
  Weight: 90.7 kg

DRUGS (6)
  1. CEFEPIME [Concomitant]
     Active Substance: CEFEPIME HYDROCHLORIDE
     Dates: start: 20200831
  2. CONVALESCENT PLASMA [Concomitant]
     Active Substance: HUMAN PLASMA
     Dates: start: 20200903, end: 20200903
  3. METHYLPREDNISOLONE. [Concomitant]
     Active Substance: METHYLPREDNISOLONE
     Dates: start: 20200831
  4. VANCOMYCIN [Concomitant]
     Active Substance: VANCOMYCIN
     Dates: start: 20200831
  5. REMDESIVIR. [Suspect]
     Active Substance: REMDESIVIR
     Indication: COVID-19
     Route: 042
     Dates: start: 20200901, end: 20200905
  6. AZITHROMYCIN ANHYDROUS. [Concomitant]
     Active Substance: AZITHROMYCIN ANHYDROUS
     Dates: start: 20200831, end: 20200904

REACTIONS (1)
  - Sinus bradycardia [None]

NARRATIVE: CASE EVENT DATE: 20200904
